FAERS Safety Report 14860917 (Version 4)
Quarter: 2019Q1

REPORT INFORMATION
  Report Type: Spontaneous
  Country: US (occurrence: US)
  Receive Date: 20180508
  Receipt Date: 20190117
  Transmission Date: 20190417
  Serious: Yes (Other)
  Sender: FDA-Public Use
  Company Number: US-PFIZER INC-2018185105

PATIENT
  Age: 62 Year
  Sex: Female

DRUGS (2)
  1. IBRANCE [Suspect]
     Active Substance: PALBOCICLIB
     Indication: BREAST CANCER FEMALE
     Dosage: 125 MG, CYCLIC (EVERY DAY FOR 21 DAYS ON AND 7 DAYS OFF)
     Route: 048
     Dates: start: 201804
  2. IBRANCE [Suspect]
     Active Substance: PALBOCICLIB
     Dosage: 100 MG, CYCLIC; [DAILY 3 WEEKS ON AND 1 WEEK OFF]
     Route: 048
     Dates: start: 201804

REACTIONS (13)
  - Paraesthesia [Unknown]
  - Fatigue [Not Recovered/Not Resolved]
  - Neuropathy peripheral [Unknown]
  - Disturbance in attention [Unknown]
  - Full blood count decreased [Unknown]
  - Dysgeusia [Unknown]
  - Hypoaesthesia [Not Recovered/Not Resolved]
  - Pain in extremity [Not Recovered/Not Resolved]
  - Dyspepsia [Unknown]
  - Dyspnoea [Not Recovered/Not Resolved]
  - Impaired healing [Not Recovered/Not Resolved]
  - Alopecia [Not Recovered/Not Resolved]
  - Arthralgia [Unknown]

NARRATIVE: CASE EVENT DATE: 201804
